FAERS Safety Report 22614184 (Version 1)
Quarter: 2023Q2

REPORT INFORMATION
  Report Type: Spontaneous
  Country: JP (occurrence: JP)
  Receive Date: 20230619
  Receipt Date: 20230619
  Transmission Date: 20230721
  Serious: Yes (Death, Hospitalization)
  Sender: FDA-Public Use
  Company Number: JP-DSJP-DSJ-2023-123977

PATIENT
  Age: 69 Year
  Sex: Male

DRUGS (2)
  1. DENOSUMAB [Suspect]
     Active Substance: DENOSUMAB
     Indication: Metastases to bone
     Dosage: 120 MG, ONCE EVERY 1 MO
     Route: 058
     Dates: start: 2021
  2. LEUPROLIDE ACETATE [Concomitant]
     Active Substance: LEUPROLIDE ACETATE
     Dosage: 22.5 MG, ONCE EVERY 6 MO
     Route: 058
     Dates: start: 2021

REACTIONS (3)
  - Asthenia [Fatal]
  - Plasma cell myeloma [Fatal]
  - Bacterial infection [Unknown]

NARRATIVE: CASE EVENT DATE: 20210101
